FAERS Safety Report 9192038 (Version 1)
Quarter: 2013Q1

REPORT INFORMATION
  Report Type: Spontaneous
  Country: US (occurrence: None)
  Receive Date: 20120703
  Receipt Date: 20120703
  Transmission Date: 20140127
  Serious: Yes (Other)
  Sender: FDA-Public Use
  Company Number: PHEH2012US009162

PATIENT
  Age: 32 Year
  Sex: Male
  Weight: 80 kg

DRUGS (5)
  1. GILENYA (FTY) CAPSULE, 0.5 MG [Suspect]
     Indication: MULTIPLE SCLEROSIS
     Route: 048
     Dates: start: 20120111
  2. CIALIS (TADAFIL) [Concomitant]
  3. OXYCODONE (OXYCODONE) [Concomitant]
  4. PROVIGIL (MODAFINIL) [Concomitant]
  5. TOPAMAX (TOPIRAMATE) [Concomitant]

REACTIONS (1)
  - Depression [None]
